FAERS Safety Report 7851683-5 (Version None)
Quarter: 2011Q4

REPORT INFORMATION
  Report Type: 
  Country: None (occurrence: None)
  Receive Date: 20111026
  Receipt Date: 20111019
  Transmission Date: 20120403
  Serious: Yes (Hospitalization, Other)
  Sender: FDA-Public Use
  Company Number: PHHY2011CL92719

PATIENT
  Age: 81 Year
  Sex: Male

DRUGS (3)
  1. GLUCOBAY [Concomitant]
  2. EXFORGE [Suspect]
     Indication: HYPERTENSION
     Dosage: 1 DF, (160/5 MG ONE TABLET PER DAY)
     Dates: end: 20110603
  3. NEO-SINTROM [Concomitant]

REACTIONS (2)
  - BLOOD POTASSIUM INCREASED [None]
  - RENAL DISORDER [None]
